FAERS Safety Report 5939873-X (Version None)
Quarter: 2008Q4

REPORT INFORMATION
  Report Type: 
  Country: None (occurrence: None)
  Receive Date: 20081030
  Receipt Date: 20081030
  Transmission Date: 20090506
  Serious: No
  Sender: FDA-Public Use
  Company Number: None

PATIENT
  Age: 76 Year
  Sex: Female
  Weight: 97.0698 kg

DRUGS (5)
  1. BONIVA [Suspect]
     Indication: OSTEOPOROSIS
     Dosage: 3 MG EVERY 3 MONTHS IV
     Route: 042
     Dates: start: 20071012
  2. BONIVA [Suspect]
     Indication: OSTEOPOROSIS
     Dosage: 3 MG EVERY 3 MONTHS IV
     Route: 042
     Dates: start: 20080116
  3. BONIVA [Suspect]
     Indication: OSTEOPOROSIS
     Dosage: 3 MG EVERY 3 MONTHS IV
     Route: 042
     Dates: start: 20080423
  4. BONIVA [Suspect]
     Indication: OSTEOPOROSIS
     Dosage: 3 MG EVERY 3 MONTHS IV
     Route: 042
     Dates: start: 20080731
  5. BONIVA [Suspect]

REACTIONS (3)
  - HEADACHE [None]
  - MUSCULOSKELETAL PAIN [None]
  - NECK PAIN [None]
